FAERS Safety Report 8018583-1 (Version None)
Quarter: 2011Q4

REPORT INFORMATION
  Report Type: 
  Country: None (occurrence: None)
  Receive Date: 20111228
  Receipt Date: 20111215
  Transmission Date: 20120403
  Serious: Yes (Hospitalization, Other)
  Sender: FDA-Public Use
  Company Number: 2009JP005556

PATIENT
  Age: 23 Year
  Sex: Female
  Weight: 46.3 kg

DRUGS (17)
  1. SELBEX (TEPRENONE) [Concomitant]
  2. TACROLIMUS [Suspect]
     Indication: LUPUS NEPHRITIS
     Dosage: 2;3 MG, ORAL
     Route: 048
     Dates: start: 20070822, end: 20080525
  3. TACROLIMUS [Suspect]
     Indication: LUPUS NEPHRITIS
     Dosage: 2;3 MG, ORAL
     Route: 048
     Dates: start: 20080526
  4. ALFAROL (ALFACALCIDOL) [Concomitant]
  5. EPADEL-S (ETHYL ICOSAPENTATE) [Concomitant]
  6. LOSARTAN POTASSIUM [Concomitant]
  7. PERSANTIN [Concomitant]
  8. VIT K CAP [Concomitant]
  9. FAMOTIDINE [Concomitant]
  10. ASPIRIN [Concomitant]
  11. PANVITAN (VITAMINS NOS) [Concomitant]
  12. METHYLPREDNISOLONE [Suspect]
     Indication: LUPUS NEPHRITIS
     Dosage: 24;20;16;12 MG, ORAL
     Route: 048
     Dates: start: 20071013, end: 20081219
  13. METHYLPREDNISOLONE [Suspect]
     Indication: LUPUS NEPHRITIS
     Dosage: 24;20;16;12 MG, ORAL
     Route: 048
     Dates: end: 20070824
  14. METHYLPREDNISOLONE [Suspect]
     Indication: LUPUS NEPHRITIS
     Dosage: 24;20;16;12 MG, ORAL
     Route: 048
     Dates: start: 20070915, end: 20071012
  15. METHYLPREDNISOLONE [Suspect]
     Indication: LUPUS NEPHRITIS
     Dosage: 24;20;16;12 MG, ORAL
     Route: 048
     Dates: start: 20070825, end: 20070914
  16. METHYLPREDNISOLONE [Suspect]
     Indication: LUPUS NEPHRITIS
     Dosage: 24;20;16;12 MG, ORAL
     Route: 048
     Dates: start: 20081220
  17. BONALON (ALENDRONIC ACID) [Concomitant]

REACTIONS (9)
  - SPINAL COMPRESSION FRACTURE [None]
  - PHARYNGITIS [None]
  - PLANTAR FASCIITIS [None]
  - OSTEOARTHRITIS [None]
  - HEADACHE [None]
  - UPPER RESPIRATORY TRACT INFLAMMATION [None]
  - GLAUCOMA [None]
  - URINARY TRACT INFECTION [None]
  - ABDOMINAL PAIN UPPER [None]
